FAERS Safety Report 15994201 (Version 2)
Quarter: 2019Q1

REPORT INFORMATION
  Report Type: Spontaneous
  Country: US (occurrence: US)
  Receive Date: 20190222
  Receipt Date: 20190327
  Transmission Date: 20190418
  Serious: No
  Sender: FDA-Public Use
  Company Number: US-AMGEN-USASP2019025722

PATIENT
  Age: 10 Year
  Sex: Female
  Weight: 43.08 kg

DRUGS (2)
  1. ENBREL [Suspect]
     Active Substance: ETANERCEPT
     Indication: JUVENILE IDIOPATHIC ARTHRITIS
     Dosage: 25 MG, QWK
     Route: 065
     Dates: start: 20180610, end: 20181123
  2. ENBREL [Suspect]
     Active Substance: ETANERCEPT
     Dosage: 16 MILLIGRAM, 2 TIMES/WK
     Route: 065
     Dates: start: 20190305

REACTIONS (3)
  - Gait inability [Recovered/Resolved]
  - Therapeutic response unexpected [Unknown]
  - Analgesic therapy [Unknown]
